FAERS Safety Report 21358980 (Version 3)
Quarter: 2022Q4

REPORT INFORMATION
  Report Type: Spontaneous
  Country: US (occurrence: US)
  Receive Date: 20220921
  Receipt Date: 20221008
  Transmission Date: 20230113
  Serious: Yes (Hospitalization, Other)
  Sender: FDA-Public Use
  Company Number: US-TORRENT-00012017

PATIENT
  Age: 15 Year
  Sex: Female

DRUGS (1)
  1. VENLAFAXINE [Suspect]
     Active Substance: VENLAFAXINE HYDROCHLORIDE
     Indication: Major depression
     Dosage: UNKNOWN
     Route: 065

REACTIONS (2)
  - Hyperprolactinaemia [Unknown]
  - Galactorrhoea [Recovered/Resolved]

NARRATIVE: CASE EVENT DATE: 20210101
